FAERS Safety Report 5318436-3 (Version None)
Quarter: 2007Q2

REPORT INFORMATION
  Report Type: 
  Country: None (occurrence: None)
  Receive Date: 20070501
  Receipt Date: 20070419
  Transmission Date: 20071010
  Serious: Yes (Hospitalization)
  Sender: FDA-Public Use
  Company Number: MEDI-0005753

PATIENT
  Age: 70 Year
  Sex: Female

DRUGS (5)
  1. ETHYOL [Suspect]
  2. RADIATION THERAPY [Concomitant]
  3. UNKNOWN CHEMOTHERAPY [Concomitant]
  4. VERAPAMIL [Concomitant]
  5. ATIVAN [Concomitant]

REACTIONS (13)
  - ASTHENIA [None]
  - ATRIAL FIBRILLATION [None]
  - ESCHERICHIA INFECTION [None]
  - GASTROINTESTINAL NECROSIS [None]
  - HYPERTENSION [None]
  - ILEUS [None]
  - INTESTINAL ISCHAEMIA [None]
  - PERITONITIS BACTERIAL [None]
  - POST PROCEDURAL COMPLICATION [None]
  - RASH [None]
  - SMALL INTESTINAL OBSTRUCTION [None]
  - SYNCOPE [None]
  - TACHYCARDIA [None]
